FAERS Safety Report 22221258 (Version 2)
Quarter: 2023Q2

REPORT INFORMATION
  Report Type: Spontaneous
  Country: JP (occurrence: JP)
  Receive Date: 20230418
  Receipt Date: 20230501
  Transmission Date: 20230721
  Serious: Yes (Death, Other)
  Sender: FDA-Public Use
  Company Number: JP-002147023-NVSJ2023JP006447

PATIENT
  Age: 42 Year
  Sex: Female

DRUGS (1)
  1. TRANDATE [Suspect]
     Active Substance: LABETALOL HYDROCHLORIDE
     Indication: Hypertension
     Dosage: UNK
     Route: 048

REACTIONS (3)
  - Anaphylactoid syndrome of pregnancy [Fatal]
  - Pre-eclampsia [Fatal]
  - Maternal exposure during pregnancy [Unknown]
